FAERS Safety Report 8882881 (Version 1)
Quarter: 2012Q4

REPORT INFORMATION
  Report Type: 
  Country: MX (occurrence: MX)
  Receive Date: 20121102
  Receipt Date: 20121102
  Transmission Date: 20130627
  Serious: Yes (Hospitalization, Other)
  Sender: FDA-Public Use
  Company Number: PHHY2012MX099700

PATIENT
  Sex: Male

DRUGS (2)
  1. CO-DIOVAN [Suspect]
     Indication: HYPERTENSION
     Dosage: 1 DF (320/25mg) per day
     Dates: start: 200501
  2. BOIDOLCE [Concomitant]
     Dosage: 1 DF, per day
     Dates: start: 201210

REACTIONS (1)
  - Femur fracture [Recovered/Resolved]
